FAERS Safety Report 25098322 (Version 1)
Quarter: 2025Q1

REPORT INFORMATION
  Report Type: Other
  Country: FR (occurrence: FR)
  Receive Date: 20250320
  Receipt Date: 20250320
  Transmission Date: 20250409
  Serious: Yes (Hospitalization)
  Sender: ZYDUS PHARM
  Company Number: None

PATIENT

DRUGS (6)
  1. VALACYCLOVIR HYDROCHLORIDE [Suspect]
     Active Substance: VALACYCLOVIR HYDROCHLORIDE
     Indication: Herpes simplex
     Route: 048
     Dates: start: 20250211
  2. BACTRIM [Suspect]
     Active Substance: SULFAMETHOXAZOLE\TRIMETHOPRIM
     Indication: Antibiotic therapy
     Route: 048
     Dates: start: 20250211
  3. CLADRIBINE [Suspect]
     Active Substance: CLADRIBINE
     Indication: Hairy cell leukaemia
     Route: 042
     Dates: start: 20250210, end: 20250215
  4. DOXYCYCLINE [Suspect]
     Active Substance: DOXYCYCLINE
     Indication: Malaria prophylaxis
     Route: 048
     Dates: start: 20250108, end: 20250202
  5. FILGRASTIM [Suspect]
     Active Substance: FILGRASTIM
     Indication: Neutropenia
     Route: 058
     Dates: start: 20250218
  6. RITUXIMAB [Suspect]
     Active Substance: RITUXIMAB
     Indication: Hairy cell leukaemia
     Route: 058
     Dates: start: 20250108, end: 20250202

REACTIONS (6)
  - Localised oedema [Recovering/Resolving]
  - Oedema peripheral [Recovering/Resolving]
  - Skin exfoliation [Recovering/Resolving]
  - Face oedema [Recovering/Resolving]
  - Pyrexia [Recovering/Resolving]
  - Rash papular [Recovering/Resolving]

NARRATIVE: CASE EVENT DATE: 20250218
